FAERS Safety Report 8451331-X (Version None)
Quarter: 2012Q2

REPORT INFORMATION
  Report Type: 
  Country: None (occurrence: None)
  Receive Date: 20120620
  Receipt Date: 20120612
  Transmission Date: 20120825
  Serious: Yes (Other)
  Sender: FDA-Public Use
  Company Number: IT-ROCHE-1080027

PATIENT
  Sex: Female

DRUGS (2)
  1. FLUTICASONE PROPIONATE/SALMETEROL [Concomitant]
     Dosage: 50/500 MCG
  2. XOLAIR [Suspect]
     Indication: ASTHMA
     Dosage: AT A CYCLIC DOSE
     Route: 058
     Dates: start: 20090420

REACTIONS (1)
  - VASCULAR ENDOTHELIAL GROWTH FACTOR ASSAY [None]
